FAERS Safety Report 17359781 (Version 3)
Quarter: 2020Q1

REPORT INFORMATION
  Report Type: Spontaneous
  Country: HR (occurrence: HR)
  Receive Date: 20200203
  Receipt Date: 20200227
  Transmission Date: 20200409
  Serious: Yes (Other)
  Sender: FDA-Public Use
  Company Number: HR-AMGEN-HRVSP2020015784

PATIENT
  Age: 72 Year
  Sex: Male

DRUGS (1)
  1. ENBREL [Suspect]
     Active Substance: ETANERCEPT
     Indication: PRODUCT USED FOR UNKNOWN INDICATION
     Dosage: UNK
     Route: 065

REACTIONS (8)
  - Hypoaesthesia [Unknown]
  - Drug ineffective [Unknown]
  - Diplopia [Recovering/Resolving]
  - Cerebrovascular accident [Unknown]
  - Vision blurred [Recovering/Resolving]
  - Pain in extremity [Unknown]
  - Ruptured cerebral aneurysm [Unknown]
  - Back injury [Unknown]

NARRATIVE: CASE EVENT DATE: 2016
